FAERS Safety Report 21177605 (Version 2)
Quarter: 2022Q3

REPORT INFORMATION
  Report Type: Spontaneous
  Country: US (occurrence: US)
  Receive Date: 20220805
  Receipt Date: 20220820
  Transmission Date: 20221026
  Serious: Yes (Other)
  Sender: FDA-Public Use
  Company Number: US-TEVA-2022-US-2060026

PATIENT
  Age: 46 Year
  Sex: Female

DRUGS (8)
  1. DOXYCYCLINE [Suspect]
     Active Substance: DOXYCYCLINE
     Indication: Pemphigus
     Dosage: 200 MILLIGRAM DAILY;
     Route: 065
  2. PREDNISONE [Suspect]
     Active Substance: PREDNISONE
     Indication: Pemphigus
     Dosage: PREDNISONE TAPER
     Route: 065
  3. MYCOPHENOLATE MOFETIL [Suspect]
     Active Substance: MYCOPHENOLATE MOFETIL
     Indication: Pemphigus
     Dosage: 2000 MILLIGRAM DAILY;
     Route: 065
  4. OCTAGAM IMMUNE GLOBULIN (HUMAN) [Suspect]
     Active Substance: HUMAN IMMUNOGLOBULIN G
     Indication: Pemphigus
     Dosage: 2 G/KG DIVIDED INTO 5 CONSECUTIVE DAILY INFUSIONS
     Route: 041
  5. OCTAGAM IMMUNE GLOBULIN (HUMAN) [Suspect]
     Active Substance: HUMAN IMMUNOGLOBULIN G
     Dosage: INFUSION RATE OF 75 ML/H
     Route: 041
  6. NIACINAMIDE [Suspect]
     Active Substance: NIACINAMIDE
     Indication: Pemphigus
     Dosage: THREE TIMES DAILY
     Route: 065
  7. CALCIUM [Suspect]
     Active Substance: CALCIUM
     Indication: Pemphigus
     Route: 065
  8. RITUXIMAB [Concomitant]
     Active Substance: RITUXIMAB
     Indication: Pemphigus
     Route: 065

REACTIONS (2)
  - Lymphadenopathy [Recovered/Resolved]
  - Drug ineffective [Unknown]
